FAERS Safety Report 12342179 (Version 1)
Quarter: 2016Q2

REPORT INFORMATION
  Report Type: Spontaneous
  Country: US (occurrence: US)
  Receive Date: 20160506
  Receipt Date: 20160506
  Transmission Date: 20160815
  Serious: No
  Sender: FDA-Public Use
  Company Number: US-ANACOR-2016ANA00098

PATIENT
  Age: 87 Year
  Sex: Female
  Weight: 58.5 kg

DRUGS (6)
  1. ALLOPURINOL. [Concomitant]
     Active Substance: ALLOPURINOL
     Indication: GOUT
     Dosage: 100 MG, 1X/DAY
  2. HYDROCHLOROTHIAZIDE. [Concomitant]
     Active Substance: HYDROCHLOROTHIAZIDE
  3. KERYDIN [Suspect]
     Active Substance: TAVABOROLE
     Indication: FUNGAL INFECTION
     Dosage: UNK UNK, 1X/DAY
     Route: 061
     Dates: start: 20160203, end: 20160305
  4. LISINOPRIL. [Concomitant]
     Active Substance: LISINOPRIL
  5. ALLOPURINOL. [Concomitant]
     Active Substance: ALLOPURINOL
     Dosage: UNK
  6. AMLODIPINE [Concomitant]
     Active Substance: AMLODIPINE BESYLATE

REACTIONS (3)
  - Tongue coated [Recovering/Resolving]
  - Blood pressure increased [Recovered/Resolved]
  - Swollen tongue [Recovering/Resolving]

NARRATIVE: CASE EVENT DATE: 20160208
